FAERS Safety Report 17527957 (Version 5)
Quarter: 2020Q2

REPORT INFORMATION
  Report Type: Spontaneous
  Country: US (occurrence: US)
  Receive Date: 20200311
  Receipt Date: 20200610
  Transmission Date: 20200713
  Serious: No
  Sender: FDA-Public Use
  Company Number: US-BIOGEN-2019BI00800580

PATIENT
  Sex: Female

DRUGS (1)
  1. TECFIDERA [Suspect]
     Active Substance: DIMETHYL FUMARATE
     Indication: MULTIPLE SCLEROSIS
     Route: 048
     Dates: start: 20130520, end: 20200519

REACTIONS (6)
  - White blood cell count decreased [Unknown]
  - Tinnitus [Unknown]
  - Multiple sclerosis [Recovered/Resolved]
  - Fatigue [Unknown]
  - Infection [Unknown]
  - Hypoacusis [Unknown]
